FAERS Safety Report 9030600 (Version 1)
Quarter: 2013Q1

REPORT INFORMATION
  Report Type: Spontaneous
  Country: US (occurrence: US)
  Receive Date: 20130123
  Receipt Date: 20130123
  Transmission Date: 20140127
  Serious: Yes (Hospitalization)
  Sender: FDA-Public Use
  Company Number: US-GILEAD-2013-0067718

PATIENT
  Sex: Male

DRUGS (2)
  1. LETAIRIS [Suspect]
     Indication: PULMONARY HYPERTENSION
     Dosage: 5 MG, UNK
     Route: 048
     Dates: start: 20120319
  2. LETAIRIS [Suspect]
     Indication: UNEVALUABLE EVENT

REACTIONS (7)
  - Chest pain [Unknown]
  - Ventricular tachycardia [Unknown]
  - Unevaluable event [Unknown]
  - Sleep apnoea syndrome [Unknown]
  - Unevaluable event [Unknown]
  - Atrial fibrillation [Unknown]
  - Dizziness [Unknown]
